FAERS Safety Report 11947221 (Version 1)
Quarter: 2016Q1

REPORT INFORMATION
  Report Type: Spontaneous
  Country: US (occurrence: US)
  Receive Date: 20160125
  Receipt Date: 20160125
  Transmission Date: 20160526
  Serious: No
  Sender: FDA-Public Use
  Company Number: US-JNJFOC-20160105463

PATIENT
  Sex: Female
  Weight: 99.34 kg

DRUGS (2)
  1. MENS ROGAINE [Suspect]
     Active Substance: MINOXIDIL
     Route: 061
  2. MENS ROGAINE [Suspect]
     Active Substance: MINOXIDIL
     Indication: ALOPECIA
     Dosage: MADE ROWS ON HEAD ABOUT 1/4 APART
     Route: 061
     Dates: start: 20140730, end: 20150730

REACTIONS (4)
  - Wrong patient received medication [Unknown]
  - Off label use [Unknown]
  - Drug ineffective [Unknown]
  - Drug administered at inappropriate site [Unknown]
